FAERS Safety Report 16885274 (Version 6)
Quarter: 2019Q4

REPORT INFORMATION
  Report Type: Report from Study
  Country: MX (occurrence: MX)
  Receive Date: 20191004
  Receipt Date: 20191216
  Transmission Date: 20200122
  Serious: Yes (Other)
  Sender: FDA-Public Use
  Company Number: MX-BAYER-2019-175383

PATIENT
  Age: 73 Year
  Sex: Female

DRUGS (2)
  1. NEXAVAR [Suspect]
     Active Substance: SORAFENIB
     Indication: HEPATOCELLULAR CARCINOMA
     Dosage: 600 MG ( 2 TABLETS IN THE MORNING AND 1 AT NIGHT)
     Route: 048
     Dates: start: 20190908
  2. NEXAVAR [Suspect]
     Active Substance: SORAFENIB
     Indication: HEPATOCELLULAR CARCINOMA
     Dosage: 400 MG, BID (2 TABLETS OF 200 MG IN THE MORNING AND 2 AT NIGHT)
     Route: 048
     Dates: start: 20190822, end: 201909

REACTIONS (23)
  - Poisoning [Recovered/Resolved]
  - Palmoplantar keratoderma [Not Recovered/Not Resolved]
  - Rash [Recovering/Resolving]
  - Decreased appetite [Not Recovered/Not Resolved]
  - Burning sensation [Recovered/Resolved]
  - Synovial cyst [Not Recovered/Not Resolved]
  - Pain in extremity [Recovered/Resolved]
  - Hyperaesthesia [Recovering/Resolving]
  - Hyperkeratosis [Recovering/Resolving]
  - Swelling face [Recovered/Resolved]
  - Swelling [Recovered/Resolved]
  - Peripheral swelling [Recovered/Resolved]
  - Erythema [Recovered/Resolved]
  - Blood urine present [Recovering/Resolving]
  - Fatigue [Not Recovered/Not Resolved]
  - Skin lesion [Recovering/Resolving]
  - Pain [Not Recovered/Not Resolved]
  - Alopecia [Not Recovered/Not Resolved]
  - Nausea [Recovering/Resolving]
  - Burning sensation [Not Recovered/Not Resolved]
  - Dry skin [Not Recovered/Not Resolved]
  - Blood urine present [Recovering/Resolving]
  - Diarrhoea [Recovering/Resolving]

NARRATIVE: CASE EVENT DATE: 2019
